FAERS Safety Report 25458396 (Version 1)
Quarter: 2025Q2

REPORT INFORMATION
  Report Type: Report from Study
  Country: US (occurrence: US)
  Receive Date: 20250620
  Receipt Date: 20250620
  Transmission Date: 20250717
  Serious: Yes (Other)
  Sender: EMD SERONO INC
  Company Number: US-Merck Healthcare KGaA-2025029514

PATIENT
  Sex: Female

DRUGS (1)
  1. TEPMETKO [Suspect]
     Active Substance: TEPOTINIB HYDROCHLORIDE
     Indication: Lung cancer metastatic
     Dates: start: 20250128

REACTIONS (6)
  - Neuropathy peripheral [Unknown]
  - Weight increased [Unknown]
  - Mouth ulceration [Unknown]
  - Rash [Recovered/Resolved]
  - Soft tissue swelling [Unknown]
  - Oedema [Unknown]
